FAERS Safety Report 6763123-8 (Version None)
Quarter: 2010Q2

REPORT INFORMATION
  Report Type: 
  Country: None (occurrence: None)
  Receive Date: 20100608
  Receipt Date: 20100608
  Transmission Date: 20101027
  Serious: Yes (Other)
  Sender: FDA-Public Use
  Company Number: None

PATIENT
  Age: 69 Year
  Sex: Female
  Weight: 90.7194 kg

DRUGS (1)
  1. LEVOFLOXACIN [Suspect]
     Indication: MENISCUS LESION
     Dosage: ONCE IN OR IV DRIP
     Route: 041
     Dates: start: 20100223, end: 20100223

REACTIONS (4)
  - ARTHROPATHY [None]
  - BLISTER [None]
  - MOBILITY DECREASED [None]
  - TENDONITIS [None]
